FAERS Safety Report 25980268 (Version 2)
Quarter: 2025Q4

REPORT INFORMATION
  Report Type: Spontaneous
  Country: EG (occurrence: EG)
  Receive Date: 20251030
  Receipt Date: 20251118
  Transmission Date: 20260118
  Serious: Yes (Other)
  Sender: NOVO NORDISK
  Company Number: EG-NOVOPROD-1545711

PATIENT
  Age: 14 Year
  Sex: Female
  Weight: 87 kg

DRUGS (10)
  1. TRESIBA [Suspect]
     Active Substance: INSULIN DEGLUDEC
     Indication: Type 1 diabetes mellitus
     Dosage: 48 IU
     Route: 058
  2. TRESIBA [Suspect]
     Active Substance: INSULIN DEGLUDEC
     Indication: Type 2 diabetes mellitus
     Dosage: 52 IU
     Route: 058
  3. NOVORAPID [Suspect]
     Active Substance: INSULIN ASPART
     Indication: Type 1 diabetes mellitus
     Dosage: DOSE WAS CORRECTED BY 5IU BASED ON BLOOD GLUCOSE
     Route: 058
  4. NOVORAPID [Suspect]
     Active Substance: INSULIN ASPART
     Indication: Type 2 diabetes mellitus
     Dosage: 52 IU, QD (16U WITH BREAKFAST , 18U WITH LUNCH AND 18U WITH DINNER)
     Route: 058
  5. NOVORAPID [Suspect]
     Active Substance: INSULIN ASPART
     Dosage: 42 IU, QD (12 IU WITH BREAKFAST, 15 IU WITH LUNCH, 15 IU WITH DINNER)
     Route: 042
  6. GLUCOPHAGE [Concomitant]
     Active Substance: METFORMIN HYDROCHLORIDE
     Indication: Type 2 diabetes mellitus
     Dosage: 1.5 DF QD
     Route: 048
  7. GLUCOPHAGE [Concomitant]
     Active Substance: METFORMIN HYDROCHLORIDE
     Indication: Type 1 diabetes mellitus
  8. METHYLCOBALAMIN [Concomitant]
     Active Substance: METHYLCOBALAMIN
     Indication: Neuropathy peripheral
     Dosage: 1 DF QD
     Route: 048
  9. FORCE D [Concomitant]
     Indication: Vitamin D deficiency
     Dosage: 1 TAB DAY AFTER DAY
     Route: 048
  10. DEVAROL S [Concomitant]
     Indication: Vitamin D deficiency
     Dosage: 1 AMPOULE EVERY TWO WEEKS
     Route: 048
     Dates: start: 20251101

REACTIONS (6)
  - Diabetic ketoacidosis [Recovered/Resolved]
  - Visual impairment [Unknown]
  - Weight increased [Unknown]
  - Helicobacter infection [Recovered/Resolved]
  - Hyperglycaemia [Not Recovered/Not Resolved]
  - Peripheral swelling [Unknown]

NARRATIVE: CASE EVENT DATE: 20250701
